FAERS Safety Report 12856125 (Version 1)
Quarter: 2016Q4

REPORT INFORMATION
  Report Type: Spontaneous
  Country: US (occurrence: US)
  Receive Date: 20161018
  Receipt Date: 20161018
  Transmission Date: 20170207
  Serious: No
  Sender: FDA-Public Use
  Company Number: US-LUPIN PHARMACEUTICALS INC.-2016-03475

PATIENT
  Sex: Female

DRUGS (1)
  1. AMLODIPINE/VALSARTAN [Suspect]
     Active Substance: AMLODIPINE\VALSARTAN
     Indication: PRODUCT USED FOR UNKNOWN INDICATION
     Dosage: 10/160 MG
     Route: 065

REACTIONS (13)
  - Headache [Unknown]
  - Cough [Unknown]
  - Hyperhidrosis [Unknown]
  - Pain in extremity [Unknown]
  - Arthralgia [Unknown]
  - Dizziness [Unknown]
  - Asthenia [Unknown]
  - Bone pain [Unknown]
  - Hypoaesthesia [Unknown]
  - Secretion discharge [Unknown]
  - Peripheral coldness [Unknown]
  - Myalgia [Unknown]
  - Oropharyngeal pain [Unknown]
